FAERS Safety Report 4361220-8 (Version None)
Quarter: 2004Q2

REPORT INFORMATION
  Report Type: 
  Country: None (occurrence: None)
  Receive Date: 20040518
  Receipt Date: 20040429
  Transmission Date: 20050107
  Serious: Yes (Hospitalization)
  Sender: FDA-Public Use
  Company Number: S04-USA-02679-01

PATIENT
  Age: 52 Year
  Sex: Female

DRUGS (3)
  1. LEXAPRO [Suspect]
     Indication: SEASONAL AFFECTIVE DISORDER
     Dosage: 10 MG QD PO
     Route: 048
     Dates: start: 20030101, end: 20030801
  2. VIOXX [Concomitant]
  3. PROTONIX [Concomitant]

REACTIONS (3)
  - MANIA [None]
  - NERVOUS SYSTEM DISORDER [None]
  - ROAD TRAFFIC ACCIDENT [None]
